FAERS Safety Report 7353541-1 (Version None)
Quarter: 2011Q1

REPORT INFORMATION
  Report Type: 
  Country: None (occurrence: None)
  Receive Date: 20110315
  Receipt Date: 20110308
  Transmission Date: 20110831
  Serious: Yes (Other)
  Sender: FDA-Public Use
  Company Number: US-ELI_LILLY_AND_COMPANY-US201103003138

PATIENT
  Sex: Female

DRUGS (1)
  1. EVISTA [Suspect]
     Indication: OSTEOPOROSIS

REACTIONS (7)
  - MUSCLE SPASMS [None]
  - INFLUENZA LIKE ILLNESS [None]
  - CYSTOCELE [None]
  - PAIN IN EXTREMITY [None]
  - RECTOCELE [None]
  - MOBILITY DECREASED [None]
  - ARTHRALGIA [None]
